FAERS Safety Report 9473777 (Version 2)
Quarter: 2013Q3

REPORT INFORMATION
  Report Type: Spontaneous
  Country: US (occurrence: US)
  Receive Date: 20130823
  Receipt Date: 20130823
  Transmission Date: 20140515
  Serious: Yes (Other)
  Sender: FDA-Public Use
  Company Number: US-BRISTOL-MYERS SQUIBB COMPANY-16977605

PATIENT
  Age: 52 Year
  Sex: Female
  Weight: 54.42 kg

DRUGS (1)
  1. SPRYCEL [Suspect]
     Indication: CHRONIC MYELOID LEUKAEMIA
     Dosage: BATCH NUMBER:2A6004E, EXP DATE:JAN15 ALSO 50 MG AND 100MG ALTERNATIVE DOSES
     Route: 048
     Dates: start: 20120913

REACTIONS (5)
  - Haemoglobin decreased [Unknown]
  - Headache [Unknown]
  - Weight increased [Unknown]
  - Insomnia [Unknown]
  - Pain in extremity [Unknown]
